FAERS Safety Report 9949260 (Version 3)
Quarter: 2015Q3

REPORT INFORMATION
  Report Type: Report from Study
  Country: US (occurrence: US)
  Receive Date: 20140122
  Receipt Date: 20150709
  Transmission Date: 20151125
  Serious: Yes (Hospitalization, Other)
  Sender: FDA-Public Use
  Company Number: AEGR000226

PATIENT

DRUGS (18)
  1. TAMSULOSIN [Concomitant]
     Active Substance: TAMSULOSIN
     Indication: BENIGN PROSTATIC HYPERPLASIA
  2. NITROGLYCERIN. [Concomitant]
     Active Substance: NITROGLYCERIN
     Indication: CHEST PAIN
     Dosage: 0.4 MG, PRN
     Route: 048
  3. JUXTAPID [Suspect]
     Active Substance: LOMITAPIDE MESYLATE
     Dosage: 5 MG, QD
     Route: 048
     Dates: start: 20131128
  4. AMLODIPINE [Concomitant]
     Active Substance: AMLODIPINE BESYLATE
     Indication: HYPERTENSION
     Dosage: 10 MG, QD
     Route: 048
  5. FISH OIL [Concomitant]
     Active Substance: FISH OIL
     Indication: PRODUCT USED FOR UNKNOWN INDICATION
     Dosage: 2000 MG, BID
     Route: 048
  6. ALFUZOSIN [Concomitant]
     Active Substance: ALFUZOSIN
     Indication: BENIGN PROSTATIC HYPERPLASIA
     Dosage: 10 MG, QD
     Route: 048
     Dates: start: 20141126
  7. LISINOPRIL. [Concomitant]
     Active Substance: LISINOPRIL
     Indication: HYPERTENSION
     Dosage: 10 MG, QD
     Route: 048
  8. METFORMIN HCL [Concomitant]
     Active Substance: METFORMIN HYDROCHLORIDE
     Indication: DIABETES MELLITUS
     Dosage: 1000 MG, QD
     Route: 048
  9. PLAVIX [Concomitant]
     Active Substance: CLOPIDOGREL BISULFATE
     Indication: PRODUCT USED FOR UNKNOWN INDICATION
  10. CLOPIDOGREL [Concomitant]
     Active Substance: CLOPIDOGREL BISULFATE
     Indication: ANTICOAGULANT THERAPY
     Dosage: 75 MG, QD
     Route: 048
     Dates: start: 200508
  11. JUXTAPID [Suspect]
     Active Substance: LOMITAPIDE MESYLATE
     Indication: TYPE IIA HYPERLIPIDAEMIA
     Dosage: 5 MG, QD
     Route: 048
     Dates: start: 20131023, end: 20131127
  12. TAMSULOSIN [Concomitant]
     Active Substance: TAMSULOSIN
     Indication: URINARY TRACT PAIN
     Dosage: 0.4 MG, QD
     Route: 048
     Dates: end: 201311
  13. ASPIRIN. [Concomitant]
     Active Substance: ASPIRIN
     Indication: ANTICOAGULANT THERAPY
     Dosage: 81 MG, QD
     Route: 048
     Dates: start: 20100907
  14. PITAVASTATIN [Concomitant]
     Active Substance: PITAVASTATIN
     Indication: HYPERCHOLESTEROLAEMIA
     Dosage: 2 MG, QD
     Route: 048
     Dates: start: 201401
  15. MULTIVITAMIN [Concomitant]
     Active Substance: VITAMINS
     Indication: SUPPLEMENTATION THERAPY
     Dosage: 1 CAPSULE, QD
     Route: 048
  16. BETA SITOSTEROL [Concomitant]
     Indication: SUPPLEMENTATION THERAPY
  17. FAMOTIDINE. [Concomitant]
     Active Substance: FAMOTIDINE
     Indication: DYSPEPSIA
     Dosage: 20 MG, BID
     Route: 048
  18. ALPHA LIPOIC ACID [Concomitant]
     Active Substance: .ALPHA.-LIPOIC ACID
     Indication: SUPPLEMENTATION THERAPY

REACTIONS (21)
  - Hydronephrosis [Recovered/Resolved]
  - Chest pain [Not Recovered/Not Resolved]
  - Hepatic steatosis [Not Recovered/Not Resolved]
  - Non-high-density lipoprotein cholesterol increased [Not Recovered/Not Resolved]
  - Calculus ureteric [Recovered/Resolved]
  - Actinic keratosis [Recovered/Resolved]
  - Alanine aminotransferase increased [Not Recovered/Not Resolved]
  - Low density lipoprotein abnormal [Not Recovered/Not Resolved]
  - Blood triglycerides increased [Not Recovered/Not Resolved]
  - Blood cholesterol increased [Not Recovered/Not Resolved]
  - Glycosylated haemoglobin increased [Unknown]
  - Nausea [Recovered/Resolved]
  - Blood pressure increased [Not Recovered/Not Resolved]
  - Gastrointestinal pain [Recovered/Resolved]
  - Aspartate aminotransferase increased [Not Recovered/Not Resolved]
  - Vomiting [Recovered/Resolved]
  - Inappropriate schedule of drug administration [Unknown]
  - Squamous cell carcinoma [Recovered/Resolved]
  - Chest pain [Recovered/Resolved]
  - Urine albumin/creatinine ratio increased [Not Recovered/Not Resolved]
  - Blood glucose increased [Unknown]

NARRATIVE: CASE EVENT DATE: 2013
